FAERS Safety Report 6970792-6 (Version None)
Quarter: 2010Q3

REPORT INFORMATION
  Report Type: 
  Country: None (occurrence: None)
  Receive Date: 20100908
  Receipt Date: 20100901
  Transmission Date: 20110219
  Serious: Yes (Hospitalization)
  Sender: FDA-Public Use
  Company Number: A0878931A

PATIENT
  Age: 33 Year
  Sex: Female

DRUGS (6)
  1. ADVAIR DISKUS 100/50 [Suspect]
     Indication: ASTHMA
     Dosage: 1PUFF TWICE PER DAY
     Route: 055
     Dates: start: 20100331, end: 20100406
  2. SINGULAIR [Concomitant]
  3. FEXOFENADINE HCL [Concomitant]
  4. NASONEX [Concomitant]
  5. ZITHROMAX [Concomitant]
  6. VENTOLIN [Concomitant]

REACTIONS (3)
  - BURNING SENSATION [None]
  - GAIT DISTURBANCE [None]
  - MUSCULOSKELETAL PAIN [None]
